FAERS Safety Report 12565275 (Version 1)
Quarter: 2016Q3

REPORT INFORMATION
  Report Type: Spontaneous
  Country: US (occurrence: None)
  Receive Date: 20160715
  Receipt Date: 20160715
  Transmission Date: 20161109
  Serious: Yes (Hospitalization)
  Sender: FDA-Public Use
  Company Number: None

PATIENT
  Age: 22 Year
  Sex: Female

DRUGS (4)
  1. ZENPEP [Suspect]
     Active Substance: PANCRELIPASE AMYLASE\PANCRELIPASE LIPASE\PANCRELIPASE PROTEASE
     Indication: CYSTIC FIBROSIS
     Dosage: W/MEALS/SNACKS ORAL
     Route: 048
     Dates: start: 20150901
  2. PULMOZYME [Suspect]
     Active Substance: DORNASE ALFA
     Indication: CYSTIC FIBROSIS
     Route: 055
     Dates: start: 20150505
  3. AMITIZA [Suspect]
     Active Substance: LUBIPROSTONE
     Indication: CYSTIC FIBROSIS
     Route: 048
     Dates: start: 20160406
  4. XOPENEX HFA [Suspect]
     Active Substance: LEVALBUTEROL TARTRATE
     Indication: CYSTIC FIBROSIS
     Route: 055
     Dates: start: 20150901

REACTIONS (3)
  - Condition aggravated [None]
  - Cystic fibrosis [None]
  - Infection [None]
